FAERS Safety Report 4425783-6 (Version None)
Quarter: 2004Q3

REPORT INFORMATION
  Report Type: 
  Country: None (occurrence: None)
  Receive Date: 20040810
  Receipt Date: 20040730
  Transmission Date: 20050211
  Serious: Yes (Death)
  Sender: FDA-Public Use
  Company Number: BLOC000819

PATIENT
  Age: 43 Year
  Sex: Female

DRUGS (1)
  1. MYOBLOC [Suspect]
     Indication: MIGRAINE
     Dosage: 5000 U INTRADERMAL
     Route: 023
     Dates: start: 20040422, end: 20040422

REACTIONS (1)
  - DEATH [None]
